FAERS Safety Report 16753502 (Version 2)
Quarter: 2019Q3

REPORT INFORMATION
  Report Type: Spontaneous
  Country: TH (occurrence: TH)
  Receive Date: 20190829
  Receipt Date: 20190925
  Transmission Date: 20191005
  Serious: Yes (Death, Life-Threatening, Hospitalization, Other)
  Sender: FDA-Public Use
  Company Number: TH-AUROBINDO-AUR-APL-2019-056509

PATIENT
  Age: 35 Year
  Sex: Male

DRUGS (2)
  1. AMOXICILLIN+CLAVULANIC ACID [Suspect]
     Active Substance: AMOXICILLIN\CLAVULANIC ACID
     Indication: SINUSITIS BACTERIAL
     Dosage: 1 DOSAGE FORM, IN TOTAL, SHORTLY AFTER INGESTING THE FIRST DOSE
     Route: 065
  2. AMOXICILLIN. [Concomitant]
     Active Substance: AMOXICILLIN
     Indication: SINUSITIS BACTERIAL
     Dosage: 1000 MILLIGRAM, TOOK THE LAST DOSE OF AMOXICILLIN (1000 MG) AT 9 AM
     Route: 065

REACTIONS (11)
  - Ventricular fibrillation [Unknown]
  - Circulatory collapse [Unknown]
  - Erythema [Unknown]
  - Generalised erythema [Unknown]
  - Drug hypersensitivity [Unknown]
  - Anaphylactic reaction [Fatal]
  - Loss of consciousness [Unknown]
  - Dyspnoea [Unknown]
  - Chest pain [Unknown]
  - Cardiac arrest [Unknown]
  - Rash pruritic [Unknown]
